FAERS Safety Report 6679835-0 (Version None)
Quarter: 2010Q2

REPORT INFORMATION
  Report Type: 
  Country: None (occurrence: None)
  Receive Date: 20100413
  Receipt Date: 20100402
  Transmission Date: 20101027
  Serious: Yes (Hospitalization, Other)
  Sender: FDA-Public Use
  Company Number: US-JNJFOC-20091206167

PATIENT
  Sex: Male

DRUGS (2)
  1. LEVAQUIN [Suspect]
     Indication: EPIDIDYMITIS
     Route: 048
  2. LEVAQUIN [Suspect]
     Indication: EPIDIDYMAL INFECTION
     Route: 042

REACTIONS (4)
  - FEMUR FRACTURE [None]
  - JOINT DISLOCATION [None]
  - LIGAMENT RUPTURE [None]
  - TENDON RUPTURE [None]
